FAERS Safety Report 5466548-6 (Version None)
Quarter: 2007Q3

REPORT INFORMATION
  Report Type: 
  Country: None (occurrence: None)
  Receive Date: 20070829
  Receipt Date: 20070829
  Transmission Date: 20080115
  Serious: Yes (Other)
  Sender: FDA-Public Use
  Company Number: None

PATIENT
  Age: 45 Year
  Sex: Female
  Weight: 67.1324 kg

DRUGS (4)
  1. ABRAXANE [Suspect]
     Indication: BREAST CANCER
     Dosage: 260MG.M2/Q 21 DAYS/IV
     Route: 042
     Dates: start: 20070817, end: 20070817
  2. XELODA [Suspect]
     Indication: BREAST CANCER
     Dosage: 825MG/M2/BID14DAYS/ORA
     Route: 048
     Dates: start: 20070817, end: 20070831
  3. ABILIFY [Concomitant]
  4. TYLENOL W/ CODEINE [Concomitant]

REACTIONS (1)
  - RASH PRURITIC [None]
